FAERS Safety Report 9531567 (Version 1)
Quarter: 2013Q3

REPORT INFORMATION
  Report Type: Spontaneous
  Country: US (occurrence: US)
  Receive Date: 20130918
  Receipt Date: 20130918
  Transmission Date: 20140515
  Serious: Yes (Other)
  Sender: FDA-Public Use
  Company Number: US-PFIZER INC-2013267682

PATIENT
  Age: 91 Year
  Sex: Female
  Weight: 86.17 kg

DRUGS (3)
  1. CELEBREX [Suspect]
     Indication: BONE DISORDER
     Dosage: 200 MG, 2X/DAY
     Route: 048
  2. CELEBREX [Suspect]
     Dosage: 200 MG, 1X/DAY
     Route: 048
  3. LIPITOR [Suspect]
     Indication: BLOOD CHOLESTEROL INCREASED
     Dosage: 40 MG, 1X/DAY
     Route: 048

REACTIONS (2)
  - Gallbladder disorder [Unknown]
  - Malaise [Unknown]
